FAERS Safety Report 18530213 (Version 3)
Quarter: 2021Q1

REPORT INFORMATION
  Report Type: Not Available
  Country: US (occurrence: US)
  Receive Date: 20201120
  Receipt Date: 20210105
  Transmission Date: 20210419
  Serious: No
  Sender: FDA-Public Use
  Company Number: US-NEUROCRINE BIOSCIENCES INC.-2020NBI04235

PATIENT
  Age: 72 Year
  Sex: Female

DRUGS (4)
  1. INGREZZA [Suspect]
     Active Substance: VALBENAZINE
     Route: 048
     Dates: start: 20191122, end: 20191227
  2. INGREZZA [Suspect]
     Active Substance: VALBENAZINE
     Indication: TARDIVE DYSKINESIA
     Route: 048
     Dates: start: 20191114, end: 20191121
  3. INGREZZA [Suspect]
     Active Substance: VALBENAZINE
     Route: 048
     Dates: start: 20191228
  4. INGREZZA [Suspect]
     Active Substance: VALBENAZINE
     Route: 048
     Dates: start: 20201101

REACTIONS (3)
  - Tardive dyskinesia [Unknown]
  - Therapeutic product effect decreased [Unknown]
  - Stomatitis [Unknown]
